FAERS Safety Report 24554344 (Version 1)
Quarter: 2024Q4

REPORT INFORMATION
  Report Type: Spontaneous
  Country: US (occurrence: US)
  Receive Date: 20241028
  Receipt Date: 20241028
  Transmission Date: 20250115
  Serious: No
  Sender: ASTELLAS
  Company Number: US-ASTELLAS-2024-AER-014294

PATIENT
  Sex: Female
  Weight: 48.99 kg

DRUGS (1)
  1. PADCEV [Suspect]
     Active Substance: ENFORTUMAB VEDOTIN-EJFV
     Indication: Product used for unknown indication
     Dosage: 0.75MG/KG
     Route: 042

REACTIONS (2)
  - Off label use [Unknown]
  - Underdose [Unknown]
